FAERS Safety Report 10062266 (Version 2)
Quarter: 2014Q2

REPORT INFORMATION
  Report Type: Spontaneous
  Country: US (occurrence: US)
  Receive Date: 20140407
  Receipt Date: 20140407
  Transmission Date: 20141212
  Serious: Yes (Other)
  Sender: FDA-Public Use
  Company Number: US-FRI-1000045628

PATIENT
  Sex: Male

DRUGS (4)
  1. ARMOUR THYROID [Suspect]
     Indication: HYPOTHYROIDISM
     Dosage: 15 MG
     Route: 048
     Dates: start: 2006, end: 2009
  2. ARMOUR THYROID [Suspect]
     Dosage: 30 MG
     Route: 048
     Dates: start: 2009
  3. ARMOUR THYROID [Suspect]
     Indication: HYPOTHYROIDISM
     Dosage: 45 MG
     Route: 048
     Dates: end: 201312
  4. ARMOUR THYROID [Suspect]
     Indication: HYPOTHYROIDISM
     Dosage: 15 MG
     Route: 048
     Dates: start: 201403, end: 201403

REACTIONS (4)
  - Pneumonia [Recovered/Resolved]
  - Gastrooesophageal reflux disease [Unknown]
  - Insomnia [Recovered/Resolved]
  - Anxiety [Recovered/Resolved]
